FAERS Safety Report 4444981-9 (Version None)
Quarter: 2004Q3

REPORT INFORMATION
  Report Type: 
  Country: None (occurrence: None)
  Receive Date: 20040907
  Receipt Date: 20040825
  Transmission Date: 20050211
  Serious: Yes (Disabling, Other)
  Sender: FDA-Public Use
  Company Number: 2004221132GB

PATIENT
  Age: 61 Year
  Sex: Male

DRUGS (11)
  1. NICORETTE [Suspect]
     Indication: SMOKING CESSATION THERAPY
     Dosage: 15 MG, TRANSDERMAL
     Route: 062
     Dates: start: 20031101, end: 20040301
  2. IBULEVE [Concomitant]
  3. PARACETAMOL [Concomitant]
  4. ALBUTEROL [Concomitant]
  5. LOPERAMIDE HCL [Concomitant]
  6. OMEPRAZOLE [Concomitant]
  7. CEPOREX [Concomitant]
  8. DIHYDROCODEINE (DIHYDROCODEINE) [Concomitant]
  9. VENTOLIN [Concomitant]
  10. IBULEVE [Concomitant]
  11. SYNTARIS (FLUNISOLIDE) [Concomitant]

REACTIONS (12)
  - APPLICATION SITE PAIN [None]
  - ARTHRALGIA [None]
  - ARTHRITIS [None]
  - FORMICATION [None]
  - INSOMNIA [None]
  - JOINT SWELLING [None]
  - MOBILITY DECREASED [None]
  - MONOPLEGIA [None]
  - MYALGIA [None]
  - NECK PAIN [None]
  - PAIN IN EXTREMITY [None]
  - PARAESTHESIA [None]
